FAERS Safety Report 4330833-1 (Version None)
Quarter: 2004Q1

REPORT INFORMATION
  Report Type: 
  Country: None (occurrence: None)
  Receive Date: 20040331
  Receipt Date: 20040319
  Transmission Date: 20041129
  Serious: Yes (Hospitalization, Other)
  Sender: FDA-Public Use
  Company Number: US068719

PATIENT
  Age: 28 Year
  Sex: Female
  Weight: 49.5 kg

DRUGS (8)
  1. EPOGEN [Suspect]
     Indication: DIALYSIS
     Dosage: 20000 U, 3 IN 1 WEEKS, SC
     Route: 058
     Dates: start: 20021220
  2. LEVOCARNITINE [Concomitant]
  3. SEVELAMER HCL [Concomitant]
  4. ITRACONAZOLE [Concomitant]
  5. METOPROLOL TARTRATE [Concomitant]
  6. BENAZEPRIL HCL [Concomitant]
  7. ZOLPIDEM TARTRATE [Concomitant]
  8. CLONIDINE [Concomitant]

REACTIONS (8)
  - ASPIRATION BONE MARROW ABNORMAL [None]
  - BLOOD ALBUMIN DECREASED [None]
  - CONVULSION [None]
  - HAEMOGLOBIN DECREASED [None]
  - HYPERTENSION [None]
  - SERUM FERRITIN INCREASED [None]
  - SYNCOPE [None]
  - THERAPEUTIC RESPONSE DECREASED [None]
